FAERS Safety Report 7562878-2 (Version None)
Quarter: 2011Q2

REPORT INFORMATION
  Report Type: 
  Country: None (occurrence: None)
  Receive Date: 20110622
  Receipt Date: 20110616
  Transmission Date: 20111010
  Serious: Yes (Other)
  Sender: FDA-Public Use
  Company Number: US-PFIZER INC-2008012875

PATIENT
  Sex: Male

DRUGS (2)
  1. CHANTIX [Suspect]
     Indication: SMOKING CESSATION THERAPY
     Dosage: STARTER PACK
     Dates: start: 20071105, end: 20080110
  2. NEXIUM [Concomitant]
     Dosage: UNK
     Dates: start: 20071022

REACTIONS (24)
  - DEPRESSION [None]
  - MEMORY IMPAIRMENT [None]
  - BLOOD GLUCOSE INCREASED [None]
  - MIGRAINE [None]
  - CARDIAC OUTPUT DECREASED [None]
  - MENTAL IMPAIRMENT [None]
  - IMPAIRED DRIVING ABILITY [None]
  - OEDEMA PERIPHERAL [None]
  - COGNITIVE DISORDER [None]
  - PALPITATIONS [None]
  - DYSPNOEA [None]
  - ANXIETY [None]
  - MOOD SWINGS [None]
  - ABNORMAL BEHAVIOUR [None]
  - TREMOR [None]
  - MUSCULOSKELETAL STIFFNESS [None]
  - HEADACHE [None]
  - CHEST PAIN [None]
  - NERVOUSNESS [None]
  - SUICIDAL IDEATION [None]
  - AGGRESSION [None]
  - BLOOD PRESSURE INCREASED [None]
  - MUSCLE TWITCHING [None]
  - NAUSEA [None]
